FAERS Safety Report 7892878-4 (Version None)
Quarter: 2011Q4

REPORT INFORMATION
  Report Type: 
  Country: None (occurrence: None)
  Receive Date: 20111104
  Receipt Date: 20111027
  Transmission Date: 20120403
  Serious: Yes (Other)
  Sender: FDA-Public Use
  Company Number: GB-US-EMD SERONO, INC.-7043551

PATIENT
  Sex: Female
  Weight: 56 kg

DRUGS (1)
  1. REBIF [Suspect]
     Indication: MULTIPLE SCLEROSIS
     Route: 058
     Dates: start: 20050701, end: 20110220

REACTIONS (3)
  - LYMPHADENOPATHY [None]
  - AXILLARY PAIN [None]
  - MALAISE [None]
